FAERS Safety Report 13838738 (Version 12)
Quarter: 2019Q2

REPORT INFORMATION
  Report Type: Report from Study
  Country: JP (occurrence: JP)
  Receive Date: 20170807
  Receipt Date: 20190430
  Transmission Date: 20190711
  Serious: Yes (Hospitalization, Other)
  Sender: FDA-Public Use
  Company Number: PHJP2017JP024572

PATIENT
  Age: 3 Month
  Sex: Male

DRUGS (61)
  1. ILARIS [Suspect]
     Active Substance: CANAKINUMAB
     Dosage: 10.9 MG, UNK
     Route: 058
     Dates: start: 20170530
  2. ILARIS [Suspect]
     Active Substance: CANAKINUMAB
     Dosage: 66 MG, UNK
     Route: 058
     Dates: start: 20180612
  3. ILARIS [Suspect]
     Active Substance: CANAKINUMAB
     Dosage: 88.5 MG, UNK
     Route: 058
     Dates: start: 20181002
  4. PREVNAR 13 [Suspect]
     Active Substance: PNEUMOCOCCAL 13-VALENT CONJUGATE VACCINE
     Indication: PROPHYLAXIS
     Dosage: 0.5 ML, QD
     Route: 058
     Dates: start: 20170123, end: 20170123
  5. BRUFEN [Concomitant]
     Active Substance: IBUPROFEN
     Dosage: 100 MG, UNK
     Route: 048
     Dates: start: 20180511, end: 20180515
  6. ILARIS [Suspect]
     Active Substance: CANAKINUMAB
     Dosage: 7.5 MG, UNK
     Route: 058
     Dates: start: 20170207
  7. ILARIS [Suspect]
     Active Substance: CANAKINUMAB
     Dosage: 34.5 MG, UNK
     Route: 058
     Dates: start: 20170704
  8. ILARIS [Suspect]
     Active Substance: CANAKINUMAB
     Dosage: 58.5 MG, UNK
     Route: 058
     Dates: start: 20180220
  9. ILARIS [Suspect]
     Active Substance: CANAKINUMAB
     Dosage: 61.5 MG, UNK
     Route: 058
     Dates: start: 20180417
  10. ASVERIN (TIPEPIDINE HIBENZATE) [Concomitant]
     Active Substance: TIPEPIDINE HIBENZATE
     Indication: PROPHYLAXIS
     Dosage: 6 MG, UNK
     Route: 048
     Dates: start: 20170620, end: 20170624
  11. CLARITHROMYCIN. [Concomitant]
     Active Substance: CLARITHROMYCIN
     Dosage: 40 MG, UNK
     Route: 048
     Dates: start: 20170925, end: 20171010
  12. CLARITHROMYCIN. [Concomitant]
     Active Substance: CLARITHROMYCIN
     Dosage: 40 MG, UNK
     Route: 048
     Dates: start: 20171027, end: 20171102
  13. ILARIS [Suspect]
     Active Substance: CANAKINUMAB
     Dosage: 55.5 MG, UNK
     Route: 058
     Dates: start: 20171226
  14. ILARIS [Suspect]
     Active Substance: CANAKINUMAB
     Dosage: 57 MG, UNK
     Route: 058
     Dates: start: 20180123
  15. ILARIS [Suspect]
     Active Substance: CANAKINUMAB
     Dosage: 84 MG, UNK
     Route: 058
     Dates: start: 20180710
  16. ILARIS [Suspect]
     Active Substance: CANAKINUMAB
     Dosage: 88.5 MG, UNK
     Route: 058
     Dates: start: 20181023
  17. PREDNISOLONE. [Concomitant]
     Active Substance: PREDNISOLONE
     Indication: PRODUCT USED FOR UNKNOWN INDICATION
     Dosage: 2.5 MG, UNK
     Route: 048
     Dates: end: 20161220
  18. PREDNISOLONE. [Concomitant]
     Active Substance: PREDNISOLONE
     Dosage: 1.5 MG, UNK
     Route: 048
     Dates: start: 20161221, end: 20161227
  19. CLARITHROMYCIN. [Concomitant]
     Active Substance: CLARITHROMYCIN
     Dosage: 40 MG, UNK
     Route: 048
     Dates: start: 20171128
  20. ONON [Concomitant]
     Active Substance: PRANLUKAST
     Dosage: 40 MG, UNK
     Route: 048
     Dates: start: 20170801, end: 20171204
  21. ILARIS [Suspect]
     Active Substance: CANAKINUMAB
     Dosage: 9.5 MG, UNK
     Route: 058
     Dates: start: 20170404
  22. ILARIS [Suspect]
     Active Substance: CANAKINUMAB
     Dosage: 40.5 MG, UNK
     Route: 058
     Dates: start: 20171107
  23. ILARIS [Suspect]
     Active Substance: CANAKINUMAB
     Dosage: 60 MG, UNK
     Route: 058
     Dates: start: 20180320
  24. ILARIS [Suspect]
     Active Substance: CANAKINUMAB
     Dosage: 90 MG, UNK
     Route: 058
     Dates: start: 20181113
  25. PREVNAR 13 [Suspect]
     Active Substance: PNEUMOCOCCAL 13-VALENT CONJUGATE VACCINE
     Dosage: 0.5 ML, QD
     Route: 058
     Dates: start: 20170227, end: 20170227
  26. SYNAGIS [Concomitant]
     Active Substance: PALIVIZUMAB
     Dosage: 100 MG, UNK
     Route: 030
     Dates: start: 20171128, end: 20171128
  27. HEPTAVAX [Concomitant]
     Indication: PROPHYLAXIS
     Dosage: 0.25 ML, UNK
     Route: 058
     Dates: start: 20170313, end: 20170313
  28. INCREMIN [Concomitant]
     Active Substance: FERRIC PYROPHOSPHATE
     Indication: ANAEMIA NEONATAL
     Dosage: 2.5 ML, UNK
     Route: 048
     Dates: end: 20170704
  29. CLARITHROMYCIN. [Concomitant]
     Active Substance: CLARITHROMYCIN
     Indication: PROPHYLAXIS
     Dosage: 60 MG, UNK
     Route: 048
     Dates: start: 20170918, end: 20170924
  30. CLARITHROMYCIN. [Concomitant]
     Active Substance: CLARITHROMYCIN
     Dosage: 40 MG, UNK
     Route: 048
     Dates: start: 20171107, end: 20171117
  31. ALIMEZINE [Concomitant]
     Indication: PROPHYLAXIS
     Dosage: 0.5 ML, UNK
     Route: 058
     Dates: start: 20180523, end: 20180523
  32. ILARIS [Suspect]
     Active Substance: CANAKINUMAB
     Indication: CHRONIC INFANTILE NEUROLOGICAL CUTANEOUS AND ARTICULAR SYNDROME
     Dosage: 5.5 MG, UNK
     Route: 058
     Dates: start: 20161216
  33. ILARIS [Suspect]
     Active Substance: CANAKINUMAB
     Dosage: 22.5 MG, UNK
     Route: 058
     Dates: start: 20170613
  34. ILARIS [Suspect]
     Active Substance: CANAKINUMAB
     Dosage: 36 MG, UNK
     Route: 058
     Dates: start: 20170829
  35. ILARIS [Suspect]
     Active Substance: CANAKINUMAB
     Dosage: 84 MG, UNK
     Route: 058
     Dates: start: 20180904
  36. PREVNAR 13 [Suspect]
     Active Substance: PNEUMOCOCCAL 13-VALENT CONJUGATE VACCINE
     Dosage: 0.5 ML, QD
     Route: 058
     Dates: start: 20170410, end: 20170410
  37. SYNAGIS [Concomitant]
     Active Substance: PALIVIZUMAB
     Dosage: 100 MG, UNK
     Route: 030
     Dates: start: 20171017, end: 20171017
  38. BIOFERMIN R [Concomitant]
     Active Substance: DIETARY SUPPLEMENT\PROBIOTICS
     Indication: PROPHYLAXIS
     Dosage: 0.5 G, UNK
     Route: 048
     Dates: start: 20170301, end: 20170306
  39. BIOFERMIN R [Concomitant]
     Active Substance: DIETARY SUPPLEMENT\PROBIOTICS
     Dosage: 0.6 G, UNK
     Route: 048
     Dates: start: 20170918
  40. BRUFEN [Concomitant]
     Active Substance: IBUPROFEN
     Indication: CHRONIC INFANTILE NEUROLOGICAL CUTANEOUS AND ARTICULAR SYNDROME
     Dosage: 150 MG, UNK
     Route: 048
     Dates: start: 20180117, end: 20180123
  41. BRUFEN [Concomitant]
     Active Substance: IBUPROFEN
     Dosage: 100 MG, UNK
     Route: 048
     Dates: start: 20181020, end: 20181023
  42. ILARIS [Suspect]
     Active Substance: CANAKINUMAB
     Dosage: 37.5 MG, UNK
     Route: 058
     Dates: start: 20171010
  43. SYNAGIS [Concomitant]
     Active Substance: PALIVIZUMAB
     Indication: PROPHYLAXIS
     Dosage: 50 MG, UNK
     Route: 030
     Dates: start: 20161226, end: 20161226
  44. PREDNISOLONE. [Concomitant]
     Active Substance: PREDNISOLONE
     Indication: CHRONIC INFANTILE NEUROLOGICAL CUTANEOUS AND ARTICULAR SYNDROME
     Dosage: UNK
     Route: 048
     Dates: start: 20161129, end: 20161227
  45. HIRUDOID [Concomitant]
     Active Substance: GLYCOSAMINOGLYCANS
     Indication: PROPHYLAXIS
     Dosage: UNK, ONCE OR TWICE DAILY
     Route: 061
     Dates: start: 20181023, end: 20181105
  46. RINDERON VG [Concomitant]
     Active Substance: BETAMETHASONE VALERATE\GENTAMICIN SULFATE
     Indication: PROPHYLAXIS
     Dosage: UNK QD
     Route: 061
     Dates: start: 20180116, end: 20180122
  47. HB VACCINE [Concomitant]
     Indication: PROPHYLAXIS
     Dosage: 0.25 ML, UNK
     Route: 058
     Dates: start: 20170130, end: 20170130
  48. SYNAGIS [Concomitant]
     Active Substance: PALIVIZUMAB
     Dosage: 65 MG, UNK
     Route: 030
     Dates: start: 20170307, end: 20170307
  49. SYNAGIS [Concomitant]
     Active Substance: PALIVIZUMAB
     Dosage: 100 MG, UNK
     Route: 030
     Dates: start: 20170905, end: 20170925
  50. CLARITH [Concomitant]
     Active Substance: CLARITHROMYCIN
     Indication: PROPHYLAXIS
     Dosage: 40 MG, UNK
     Route: 048
     Dates: start: 20171128
  51. ONON [Concomitant]
     Active Substance: PRANLUKAST
     Indication: PROPHYLAXIS
     Dosage: 20 MG, QD
     Route: 048
     Dates: start: 20170104, end: 20170117
  52. BRUFEN [Concomitant]
     Active Substance: IBUPROFEN
     Dosage: 100 MG, UNK
     Route: 048
     Dates: start: 20181104, end: 20181113
  53. ILARIS [Suspect]
     Active Substance: CANAKINUMAB
     Dosage: 40.5 MG, UNK
     Route: 058
     Dates: start: 20171205
  54. ILARIS [Suspect]
     Active Substance: CANAKINUMAB
     Dosage: 63 MG, UNK
     Route: 058
     Dates: start: 20180515
  55. ILARIS [Suspect]
     Active Substance: CANAKINUMAB
     Dosage: 84 MG, UNK
     Route: 058
     Dates: start: 20180807
  56. ILARIS [Suspect]
     Active Substance: CANAKINUMAB
     Dosage: 90 MG, UNK
     Route: 058
     Dates: start: 20181204
  57. SYNAGIS [Concomitant]
     Active Substance: PALIVIZUMAB
     Dosage: 50 MG, UNK
     Route: 030
     Dates: start: 20170131, end: 20170131
  58. ALFAROL [Concomitant]
     Active Substance: ALFACALCIDOL
     Indication: PRODUCT USED FOR UNKNOWN INDICATION
     Dosage: 0.5 ML, UNK
     Route: 048
     Dates: end: 20170801
  59. MUCODYNE-DS [Concomitant]
     Active Substance: CARBOCYSTEINE
     Indication: PROPHYLAXIS
     Dosage: 150 MG, UNK
     Route: 048
     Dates: start: 20170620, end: 20170624
  60. ONON [Concomitant]
     Active Substance: PRANLUKAST
     Indication: RESPIRATORY SYNCYTIAL VIRUS BRONCHIOLITIS
     Dosage: 35 MG, UNK
     Route: 048
     Dates: start: 20170721, end: 20170731
  61. BRUFEN [Concomitant]
     Active Substance: IBUPROFEN
     Dosage: 100 MG, UNK
     Route: 048
     Dates: start: 20180609, end: 20180612

REACTIONS (13)
  - Pyrexia [Recovering/Resolving]
  - Bronchitis [Recovering/Resolving]
  - Bone formation increased [Unknown]
  - Injection site swelling [Unknown]
  - Pyrexia [Recovered/Resolved]
  - Cough [Unknown]
  - Pyrexia [Recovered/Resolved]
  - Infection [Unknown]
  - Chronic infantile neurological cutaneous and articular syndrome [Recovering/Resolving]
  - Product administered to patient of inappropriate age [Unknown]
  - Respiratory syncytial virus bronchiolitis [Recovering/Resolving]
  - Rhinorrhoea [Unknown]
  - C-reactive protein increased [Not Recovered/Not Resolved]

NARRATIVE: CASE EVENT DATE: 20170104
